FAERS Safety Report 13470312 (Version 2)
Quarter: 2017Q4

REPORT INFORMATION
  Report Type: Report from Study
  Country: MX (occurrence: MX)
  Receive Date: 20170423
  Receipt Date: 20171004
  Transmission Date: 20180320
  Serious: Yes (Hospitalization, Other)
  Sender: FDA-Public Use
  Company Number: MX-UCBSA-2016016477

PATIENT
  Age: 57 Year
  Sex: Female
  Weight: 90 kg

DRUGS (15)
  1. CERTOLIZUMAB PEGOL [Suspect]
     Active Substance: CERTOLIZUMAB PEGOL
     Dosage: 400 MG, EV 2 WEEKS(QOW)
     Route: 058
     Dates: start: 20170215
  2. METFORMIN [Concomitant]
     Active Substance: METFORMIN HYDROCHLORIDE
     Dosage: 800 MG, 2X/2 DAYS
     Dates: start: 2011
  3. FLUOXETINE [Concomitant]
     Active Substance: FLUOXETINE HYDROCHLORIDE
     Indication: NERVOUSNESS
     Dosage: 20MG (? OF A TABLET/12 HRS) 2X/DAY (BID)
     Dates: start: 2013
  4. TRAMADOL. [Concomitant]
     Active Substance: TRAMADOL
     Indication: PAIN
     Dosage: 20 DROPS/12 HRS
     Dates: start: 201612
  5. CERTOLIZUMAB PEGOL [Suspect]
     Active Substance: CERTOLIZUMAB PEGOL
     Indication: ANKYLOSING SPONDYLITIS
     Dosage: 200 MG, EV 15 DAYS
     Route: 058
     Dates: start: 20160215
  6. COBAMAMIDE W/THIOCOLCHICOSIDE [Concomitant]
     Indication: DIPLEGIA
     Dosage: 20MG/4MG (1 INJECTION/7 DAYS)
     Dates: start: 20160421
  7. CERTOLIZUMAB PEGOL [Suspect]
     Active Substance: CERTOLIZUMAB PEGOL
     Indication: RHEUMATOID ARTHRITIS
     Dosage: 200 MG, EV 2 WEEKS(QOW), SOME TIME 200MG OR 400MG MONTHLY
     Route: 058
     Dates: end: 20170115
  8. PREGABALIN. [Concomitant]
     Active Substance: PREGABALIN
     Indication: NERVOUSNESS
     Dosage: 1.25 MG, 3X/DAY (TID) (2GR (1.25MG/8 HRS)
     Dates: start: 201510
  9. FEXOFENADINE [Concomitant]
     Active Substance: FEXOFENADINE\FEXOFENADINE HYDROCHLORIDE
     Indication: HYPERSENSITIVITY
     Dosage: 1 TABLET/12 HRS
     Dates: start: 1998
  10. METFORMIN [Concomitant]
     Active Substance: METFORMIN HYDROCHLORIDE
     Indication: DIABETES MELLITUS
     Dosage: 850 MG, 2X/DAY (BID)
     Dates: start: 2005
  11. AMBROXOL [Concomitant]
     Active Substance: AMBROXOL
     Indication: INFLUENZA
     Dosage: UNK
     Dates: start: 201608
  12. MONTELUKAST [Concomitant]
     Active Substance: MONTELUKAST SODIUM
     Indication: HYPERSENSITIVITY
     Dosage: 1 TABLET/24 HRS
     Dates: start: 1998
  13. TELMISARTAN. [Concomitant]
     Active Substance: TELMISARTAN
     Indication: HYPERTENSION
     Dosage: 40 MG, 2X/DAY (BID)
     Dates: start: 1985
  14. PREGABALIN. [Concomitant]
     Active Substance: PREGABALIN
     Indication: MUSCLE RELAXANT THERAPY
     Dosage: 1 TABLET/12 HRS
     Dates: start: 201611
  15. MUCOSOLVAN [Concomitant]
     Active Substance: AMBROXOL HYDROCHLORIDE
     Indication: NASAL DISCHARGE DISCOLOURATION
     Dosage: UNK

REACTIONS (14)
  - Ulcer [Not Recovered/Not Resolved]
  - Bronchitis [Unknown]
  - Fall [Not Recovered/Not Resolved]
  - Therapeutic response unexpected [Unknown]
  - Arthralgia [Recovered/Resolved]
  - Hypoaesthesia [Recovered/Resolved]
  - Bone pain [Recovered/Resolved]
  - Intentional product misuse [Unknown]
  - Ankle fracture [Not Recovered/Not Resolved]
  - Nasal discharge discolouration [Recovered/Resolved]
  - Rhinorrhoea [Not Recovered/Not Resolved]
  - Asthma [Recovered/Resolved]
  - Joint stiffness [Recovered/Resolved]
  - Influenza [Recovered/Resolved]

NARRATIVE: CASE EVENT DATE: 2016
